FAERS Safety Report 10311557 (Version 3)
Quarter: 2014Q3

REPORT INFORMATION
  Report Type: Spontaneous
  Country: US (occurrence: US)
  Receive Date: 20140717
  Receipt Date: 20140917
  Transmission Date: 20150326
  Serious: Yes (Death, Life-Threatening)
  Sender: FDA-Public Use
  Company Number: US-GLAXOSMITHKLINE-A1081347A

PATIENT
  Age: 50 Year
  Sex: Female

DRUGS (12)
  1. NASONEX [Concomitant]
     Active Substance: MOMETASONE FUROATE
  2. PREDNISONE. [Concomitant]
     Active Substance: PREDNISONE
  3. GABAPENTIN. [Concomitant]
     Active Substance: GABAPENTIN
  4. THEOPHYLLINE [Concomitant]
     Active Substance: THEOPHYLLINE
  5. ALBUTEROL. [Concomitant]
     Active Substance: ALBUTEROL
  6. VENTOLIN [Suspect]
     Active Substance: ALBUTEROL SULFATE
     Indication: CHRONIC OBSTRUCTIVE PULMONARY DISEASE
     Dosage: 2PUFF FOUR TIMES PER DAY
     Route: 055
     Dates: start: 20130826
  7. SEREVENT [Concomitant]
     Active Substance: SALMETEROL XINAFOATE
  8. PERCOCET [Concomitant]
     Active Substance: ACETAMINOPHEN\OXYCODONE HYDROCHLORIDE
  9. BENADRYL [Concomitant]
     Active Substance: DIPHENHYDRAMINE HYDROCHLORIDE
  10. LEVOTHYROXINE [Concomitant]
     Active Substance: LEVOTHYROXINE
  11. SINGULAIR [Concomitant]
     Active Substance: MONTELUKAST SODIUM
  12. IPRATROPIUM [Concomitant]
     Active Substance: IPRATROPIUM

REACTIONS (3)
  - Asthma [Fatal]
  - Dyspnoea [Fatal]
  - Chronic obstructive pulmonary disease [Fatal]
